FAERS Safety Report 6233069-2 (Version None)
Quarter: 2009Q2

REPORT INFORMATION
  Report Type: 
  Country: None (occurrence: None)
  Receive Date: 20090616
  Receipt Date: 20090616
  Transmission Date: 20091009
  Serious: Yes (Hospitalization)
  Sender: FDA-Public Use
  Company Number: None

PATIENT
  Age: 62 Year
  Sex: Male
  Weight: 83.9 kg

DRUGS (1)
  1. WARFARIN SODIUM [Suspect]
     Indication: AORTIC VALVE REPLACEMENT
     Dosage: 77.5 MG QWEEK PO
     Route: 048
     Dates: start: 20090113, end: 20090320

REACTIONS (5)
  - INTERNATIONAL NORMALISED RATIO INCREASED [None]
  - NAUSEA [None]
  - OESOPHAGEAL RUPTURE [None]
  - PROTHROMBIN TIME PROLONGED [None]
  - UPPER GASTROINTESTINAL HAEMORRHAGE [None]
